FAERS Safety Report 8832104 (Version 1)
Quarter: 2012Q4

REPORT INFORMATION
  Report Type: 
  Country: US (occurrence: US)
  Receive Date: 20121009
  Receipt Date: 20121009
  Transmission Date: 20130627
  Serious: Yes (Other)
  Sender: FDA-Public Use
  Company Number: US-ROCHE-1133644

PATIENT
  Sex: Male
  Weight: 80.36 kg

DRUGS (3)
  1. RITUXAN [Suspect]
     Indication: CHRONIC LYMPHOCYTIC LEUKAEMIA
     Route: 065
     Dates: start: 20001117
  2. FLUDARABINE [Concomitant]
  3. CYTOXAN [Concomitant]
     Route: 065

REACTIONS (10)
  - Herpes virus infection [Recovered/Resolved]
  - Chest pain [Recovered/Resolved]
  - Anaemia haemolytic autoimmune [Unknown]
  - Pruritus [Unknown]
  - Urticaria [Recovered/Resolved]
  - Pyrexia [Recovered/Resolved]
  - Dysphagia [Recovered/Resolved]
  - Fatigue [Unknown]
  - Dehydration [Unknown]
  - Hypotension [Unknown]
